FAERS Safety Report 5088148-2 (Version None)
Quarter: 2006Q3

REPORT INFORMATION
  Report Type: 
  Country: None (occurrence: None)
  Receive Date: 20060821
  Receipt Date: 20060810
  Transmission Date: 20061208
  Serious: Yes (Other)
  Sender: FDA-Public Use
  Company Number: HQWYE351723JUN06

PATIENT
  Age: 37 Year
  Sex: Female
  Weight: 60.38 kg

DRUGS (3)
  1. EFFEXOR XR [Suspect]
     Indication: DEPRESSION
     Dosage: SEE IMAGE
     Route: 048
     Dates: start: 20060501, end: 20060101
  2. EFFEXOR XR [Suspect]
     Indication: DEPRESSION
     Dosage: SEE IMAGE
     Route: 048
     Dates: start: 20051001, end: 20060501
  3. ATIVAN [Concomitant]

REACTIONS (8)
  - CONSTIPATION [None]
  - DRUG WITHDRAWAL SYNDROME [None]
  - EYE OEDEMA [None]
  - FACE OEDEMA [None]
  - LARYNGEAL OEDEMA [None]
  - OEDEMA MOUTH [None]
  - THROAT TIGHTNESS [None]
  - URTICARIA GENERALISED [None]
